FAERS Safety Report 23725155 (Version 3)
Quarter: 2024Q2

REPORT INFORMATION
  Report Type: Spontaneous
  Country: EG (occurrence: EG)
  Receive Date: 20240410
  Receipt Date: 20240510
  Transmission Date: 20240716
  Serious: Yes (Other)
  Sender: FDA-Public Use
  Company Number: EG-NOVOPROD-1199206

PATIENT
  Age: 724 Month
  Sex: Female
  Weight: 65 kg

DRUGS (4)
  1. MIXTARD HUMAN 70/30 [Suspect]
     Active Substance: INSULIN HUMAN
     Dosage: UNK
     Route: 058
  2. MIXTARD HUMAN 70/30 [Suspect]
     Active Substance: INSULIN HUMAN
     Indication: Type 1 diabetes mellitus
     Dosage: 70 IU, QD (50 IU AM /20 PM)
     Route: 058
  3. NEUROVIT [CYANOCOBALAMIN;PYRIDOXINE HYDROCHLORIDE;THIAMINE MONONITRATE [Concomitant]
     Indication: Product used for unknown indication
     Dosage: UNK
  4. DEPOVIT B12 [Concomitant]
     Indication: Product used for unknown indication
     Dosage: UNK

REACTIONS (5)
  - Retinal infiltrates [Recovered/Resolved]
  - Cataract [Recovered/Resolved]
  - Blood glucose increased [Recovered/Resolved]
  - Visual impairment [Unknown]
  - Diabetic neuropathy [Unknown]

NARRATIVE: CASE EVENT DATE: 20230301
